FAERS Safety Report 26188574 (Version 1)
Quarter: 2025Q4

REPORT INFORMATION
  Report Type: Spontaneous
  Country: EU (occurrence: EU)
  Receive Date: 20251222
  Receipt Date: 20251222
  Transmission Date: 20260118
  Serious: Yes (Hospitalization, Other)
  Sender: ELI LILLY AND COMPANY
  Company Number: EU-BRISTOL-MYERS SQUIBB COMPANY-2025-167493

PATIENT
  Age: 66 Year
  Sex: Female

DRUGS (16)
  1. PEMETREXED [Suspect]
     Active Substance: PEMETREXED
     Indication: Product used for unknown indication
     Dosage: UNK UNK, UNKNOWN
     Route: 065
     Dates: start: 202501
  2. PEMETREXED [Suspect]
     Active Substance: PEMETREXED
     Dosage: UNK UNK, UNKNOWN (3 MONTHS 9LA)
     Route: 065
     Dates: start: 202505
  3. PEMETREXED [Suspect]
     Active Substance: PEMETREXED
     Dosage: UNK UNK, UNKNOWN (6 MONTHS 9LA)
     Route: 065
     Dates: start: 202508
  4. PEMETREXED [Suspect]
     Active Substance: PEMETREXED
     Dosage: UNK UNK, UNKNOWN (9 MONTHS 9LA)
     Route: 065
     Dates: start: 202511
  5. IPILIMUMAB [Suspect]
     Active Substance: IPILIMUMAB
     Indication: Product used for unknown indication
     Dosage: UNK UNK, UNKNOWN
     Route: 065
     Dates: start: 202501
  6. IPILIMUMAB [Suspect]
     Active Substance: IPILIMUMAB
     Dosage: UNK UNK, UNKNOWN (9 MONTHS 9LA)
     Route: 065
     Dates: start: 202505
  7. IPILIMUMAB [Suspect]
     Active Substance: IPILIMUMAB
     Dosage: UNK UNK, UNKNOWN (6 MONTHS)
     Route: 065
     Dates: start: 202508
  8. IPILIMUMAB [Suspect]
     Active Substance: IPILIMUMAB
     Dosage: UNK UNK, UNKNOWN (9 MONTHS)
     Dates: start: 202511
  9. NIVOLUMAB [Suspect]
     Active Substance: NIVOLUMAB
     Indication: Product used for unknown indication
     Dosage: UNK UNK, UNKNOWN
     Dates: start: 202501
  10. NIVOLUMAB [Suspect]
     Active Substance: NIVOLUMAB
     Dosage: UNK UNK, UNKNOWN (3 MONTHS 9LA)
     Route: 065
     Dates: start: 202505
  11. NIVOLUMAB [Suspect]
     Active Substance: NIVOLUMAB
     Dosage: UNK UNK, UNKNOWN (3 MONTHS 9LA)
     Route: 065
     Dates: start: 202508
  12. NIVOLUMAB [Suspect]
     Active Substance: NIVOLUMAB
     Dosage: UNK UNK, UNKNOWN (9 MONTHS 9LA)
     Route: 065
     Dates: start: 202511
  13. CARBOPLATIN [Suspect]
     Active Substance: CARBOPLATIN
     Indication: Product used for unknown indication
     Dosage: UNK UNK, UNKNOWN
     Route: 065
     Dates: start: 202501
  14. CARBOPLATIN [Suspect]
     Active Substance: CARBOPLATIN
     Dosage: UNK UNK, UNKNOWN (3MONTHS 9LA3 MONTHS 9LA)
     Route: 065
     Dates: start: 202505
  15. CARBOPLATIN [Suspect]
     Active Substance: CARBOPLATIN
     Dosage: UNK UNK, UNKNOWN (6 MONTHS 9LA)
     Route: 065
     Dates: start: 202508
  16. CARBOPLATIN [Suspect]
     Active Substance: CARBOPLATIN
     Dosage: 9 MONTHS 9LA
     Dates: start: 202511

REACTIONS (3)
  - Autoimmune colitis [Unknown]
  - Hyperthyroidism [Unknown]
  - Asthenia [Unknown]

NARRATIVE: CASE EVENT DATE: 20250101
